FAERS Safety Report 4775915-5 (Version None)
Quarter: 2005Q3

REPORT INFORMATION
  Report Type: 
  Country: None (occurrence: None)
  Receive Date: 20050922
  Receipt Date: 20050905
  Transmission Date: 20060218
  Serious: Yes (Death)
  Sender: FDA-Public Use
  Company Number: PHHO2005JP13993

PATIENT
  Age: 75 Year
  Sex: Male

DRUGS (6)
  1. SELBEX [Concomitant]
     Indication: GASTRITIS
     Dosage: 150MG DAILY
     Route: 048
     Dates: start: 20030226
  2. LAC B [Concomitant]
     Indication: IRRITABLE BOWEL SYNDROME
     Dosage: 3.0MG DAILY
     Route: 048
     Dates: start: 20030226
  3. GASMOTIN [Concomitant]
     Indication: GASTRITIS
     Dosage: 15MG DAILY
     Route: 048
     Dates: start: 20030403
  4. CEREKINON [Concomitant]
     Dosage: 300MG DAILY
     Route: 048
     Dates: start: 20040609
  5. GASCON [Concomitant]
     Dosage: 120MG DAILY
     Route: 048
     Dates: start: 20040609
  6. DIOVAN [Suspect]
     Indication: HYPERTENSION
     Dosage: 80 MG, QD
     Route: 048
     Dates: start: 20030324

REACTIONS (1)
  - CARDIO-RESPIRATORY ARREST [None]
